FAERS Safety Report 8291030 (Version 3)
Quarter: 2013Q2

REPORT INFORMATION
  Report Type: Spontaneous
  Country: US (occurrence: None)
  Receive Date: 20111122
  Receipt Date: 20120703
  Transmission Date: 20140414
  Serious: No
  Sender: FDA-Public Use
  Company Number: PHHY2011US10749

PATIENT
  Age: 46 Year
  Sex: Female

DRUGS (24)
  1. GILENYA [Suspect]
     Indication: MULTIPLE SCLEROSIS
     Dosage: 0.5 MG, QD, ORAL
     Route: 048
     Dates: start: 20110224
  2. REBIF [Concomitant]
  3. ANTIBIOTICS (NO INGREDIENTS/SUBSTANCES) [Concomitant]
  4. RHINOCORT [Concomitant]
  5. ASTELIN [Concomitant]
  6. IMODIUM A-D [Concomitant]
  7. GAS-X (SIMETICONE) [Concomitant]
  8. PROVENTIL [Concomitant]
  9. GABAPENTIN (GABAPENTIN) [Concomitant]
  10. NAPROXEN (NAPROXEN) [Concomitant]
  11. TOPROL XL [Concomitant]
  12. SINGULAIR [Concomitant]
  13. ZYRTEC [Concomitant]
  14. ASPIRIN [Concomitant]
  15. PULMICORT FLEXHALER [Concomitant]
  16. MECLIZINE [Concomitant]
  17. PREDNISONE [Concomitant]
  18. TYLENOL (PARACETAMOL) [Concomitant]
  19. HYDROCODONE (HYDROCODONE) [Concomitant]
  20. OXYBUTYNIN CHLORIDE (OXYBUTYNIN HYDROCHLORIDE) [Concomitant]
  21. EXCEDRIN (CAFFEINE, PARACETAMOL) [Concomitant]
  22. LACTAID (TILACTASE) [Concomitant]
  23. PEPTO-BISMOL (BISMUTH SUBSALICYLATE) [Concomitant]
  24. MAALOX (ALGELDRATE, MAGNESIUM HYDROXIDE) [Concomitant]

REACTIONS (7)
  - NAUSEA [None]
  - CHILLS [None]
  - PAIN [None]
  - SINUSITIS [None]
  - HEADACHE [None]
  - Malaise [None]
  - Urticaria [None]
